FAERS Safety Report 17770741 (Version 10)
Quarter: 2021Q3

REPORT INFORMATION
  Report Type: Spontaneous
  Country: US (occurrence: US)
  Receive Date: 20200512
  Receipt Date: 20210701
  Transmission Date: 20211014
  Serious: No
  Sender: FDA-Public Use
  Company Number: US-SA-2020SA121833

PATIENT
  Age: 41 Year
  Sex: Female

DRUGS (1)
  1. CABLIVI [Suspect]
     Active Substance: CAPLACIZUMAB-YHDP
     Indication: THROMBOTIC MICROANGIOPATHY
     Dosage: 11 MG, QD
     Route: 058
     Dates: start: 20200507

REACTIONS (24)
  - Injection site erythema [Unknown]
  - Insomnia [Unknown]
  - Neutrophil count abnormal [Unknown]
  - Constipation [Recovering/Resolving]
  - Nausea [Unknown]
  - Mean cell volume abnormal [Unknown]
  - Platelet count increased [Recovered/Resolved]
  - Infection [Unknown]
  - Haematocrit abnormal [Unknown]
  - Pain [Recovered/Resolved]
  - Product quality issue [Unknown]
  - Immunoglobulins abnormal [Unknown]
  - Red blood cell count abnormal [Unknown]
  - Haemoglobin abnormal [Unknown]
  - ADAMTS13 activity decreased [Not Recovered/Not Resolved]
  - Injection site bruising [Unknown]
  - Injection site swelling [Unknown]
  - Contusion [Recovered/Resolved]
  - Injection site pain [Unknown]
  - Laboratory test abnormal [Unknown]
  - Mean cell haemoglobin concentration abnormal [Unknown]
  - Fatigue [Unknown]
  - White blood cell count abnormal [Unknown]
  - Injection site haemorrhage [Recovered/Resolved]

NARRATIVE: CASE EVENT DATE: 202005
